FAERS Safety Report 8244396 (Version 2)
Quarter: 2012Q4

REPORT INFORMATION
  Report Type: 
  Country: FR (occurrence: FR)
  Receive Date: 20111115
  Receipt Date: 20120928
  Transmission Date: 20130627
  Serious: Yes (Hospitalization)
  Sender: FDA-Public Use
  Company Number: FR-PFIZER INC-2011277137

PATIENT
  Age: 85 Year
  Sex: Male

DRUGS (5)
  1. CORDARONE [Suspect]
     Indication: ARRHYTHMIA
     Dosage: 200 mg, 5 DF, weekly
     Route: 048
     Dates: end: 20111017
  2. MODOPAR [Concomitant]
     Dosage: UNK
  3. LANTUS [Concomitant]
     Dosage: UNK
  4. CEFUROXIME [Concomitant]
     Dosage: UNK
     Dates: start: 20111005, end: 20111013
  5. DAFALGAN [Concomitant]
     Dosage: UNK

REACTIONS (3)
  - Hyperthyroidism [Recovered/Resolved]
  - Aggression [Recovered/Resolved]
  - Abnormal behaviour [Recovered/Resolved]
